FAERS Safety Report 11959352 (Version 1)
Quarter: 2016Q1

REPORT INFORMATION
  Report Type: Report from Study
  Country: US (occurrence: US)
  Receive Date: 20160126
  Receipt Date: 20160126
  Transmission Date: 20160526
  Serious: Yes (Death)
  Sender: FDA-Public Use
  Company Number: PHEH2016US001936

PATIENT
  Age: 64 Year

DRUGS (1)
  1. ZOMETA [Suspect]
     Active Substance: ZOLEDRONIC ACID
     Indication: PRODUCT USED FOR UNKNOWN INDICATION
     Dosage: 4 MG/100 ML, EVERY 3 MONTHS
     Route: 065
     Dates: start: 20150625

REACTIONS (1)
  - Death [Fatal]

NARRATIVE: CASE EVENT DATE: 20160122
